FAERS Safety Report 12957871 (Version 1)
Quarter: 2016Q4

REPORT INFORMATION
  Report Type: Spontaneous
  Country: IT (occurrence: IT)
  Receive Date: 20161118
  Receipt Date: 20161118
  Transmission Date: 20170207
  Serious: Yes (Other)
  Sender: FDA-Public Use
  Company Number: IT-ALLERGAN-1676658US

PATIENT
  Age: 56 Year
  Sex: Male
  Weight: 80 kg

DRUGS (7)
  1. OMEPRAZEN [Concomitant]
     Active Substance: OMEPRAZOLE
  2. ESKIM [Concomitant]
     Active Substance: OMEGA-3 FATTY ACIDS
  3. CARDIOASPIRIN [Concomitant]
     Active Substance: ASPIRIN
  4. PROVISACOR [Concomitant]
     Active Substance: ROSUVASTATIN
  5. ZETIA [Concomitant]
     Active Substance: EZETIMIBE
  6. NEBIVOLOL HCL - BP [Suspect]
     Active Substance: NEBIVOLOL
     Indication: MYOCARDIAL ISCHAEMIA
     Dosage: 5 MG, QD
     Route: 048
     Dates: start: 20131004, end: 20161025
  7. MICARDIS [Concomitant]
     Active Substance: TELMISARTAN

REACTIONS (2)
  - Bradycardia [Unknown]
  - Prostate cancer [Unknown]

NARRATIVE: CASE EVENT DATE: 2014
